FAERS Safety Report 4892592-3 (Version None)
Quarter: 2006Q1

REPORT INFORMATION
  Report Type: 
  Country: None (occurrence: None)
  Receive Date: 20060126
  Receipt Date: 20060119
  Transmission Date: 20060701
  Serious: Yes (Hospitalization)
  Sender: FDA-Public Use
  Company Number: HU-ROCHE-432936

PATIENT
  Age: 66 Year
  Sex: Female

DRUGS (2)
  1. XENICAL [Suspect]
     Indication: OBESITY
     Route: 048
     Dates: start: 20051101, end: 20051115
  2. XENICAL [Suspect]
     Route: 048
     Dates: start: 20051116, end: 20060114

REACTIONS (4)
  - ABDOMINAL PAIN [None]
  - DIARRHOEA [None]
  - HERPES VIRUS INFECTION [None]
  - LOWER LIMB FRACTURE [None]
